FAERS Safety Report 6434650-8 (Version None)
Quarter: 2009Q4

REPORT INFORMATION
  Report Type: 
  Country: None (occurrence: None)
  Receive Date: 20091110
  Receipt Date: 20091028
  Transmission Date: 20100525
  Serious: Yes (Hospitalization, Other)
  Sender: FDA-Public Use
  Company Number: US-CELGENEUS-163-20484-09102311

PATIENT
  Age: 46 Year
  Sex: Male
  Weight: 56.25 kg

DRUGS (2)
  1. TINZAPARIN [Suspect]
     Route: 058
     Dates: start: 20090616, end: 20090901
  2. TINZAPARIN [Suspect]
     Route: 058
     Dates: start: 20090929

REACTIONS (4)
  - ANAEMIA [None]
  - BONE MARROW FAILURE [None]
  - HAEMATURIA [None]
  - THROMBOCYTOPENIA [None]
